FAERS Safety Report 17013966 (Version 1)
Quarter: 2019Q4

REPORT INFORMATION
  Report Type: Spontaneous
  Country: FR (occurrence: FR)
  Receive Date: 20191111
  Receipt Date: 20191111
  Transmission Date: 20200122
  Serious: Yes (Other)
  Sender: FDA-Public Use
  Company Number: FR-BRISTOL-MYERS SQUIBB COMPANY-BMS-2019-105729

PATIENT
  Age: 74 Year
  Sex: Female

DRUGS (1)
  1. HYDREA [Suspect]
     Active Substance: HYDROXYUREA
     Indication: POLYCYTHAEMIA VERA
     Dosage: 1 DOSAGE FORM
     Route: 048
     Dates: start: 2014

REACTIONS (2)
  - Actinic keratosis [Recovered/Resolved]
  - Bowen^s disease [Recovered/Resolved]
